FAERS Safety Report 11138740 (Version 1)
Quarter: 2015Q2

REPORT INFORMATION
  Report Type: Spontaneous
  Country: US (occurrence: US)
  Receive Date: 20150527
  Receipt Date: 20150527
  Transmission Date: 20150821
  Serious: No
  Sender: FDA-Public Use
  Company Number: US-ASTRAZENECA-2015SE45556

PATIENT
  Age: 950 Month
  Sex: Female
  Weight: 55 kg

DRUGS (10)
  1. NORTRIPTYLINE [Suspect]
     Active Substance: NORTRIPTYLINE
     Route: 065
  2. TOPROL XL [Concomitant]
     Active Substance: METOPROLOL SUCCINATE
     Dosage: 25 MG, TABLET CUT IN HALF, 12.5 PERCENT DAILY
  3. CALCIUM [Concomitant]
     Active Substance: CALCIUM
     Route: 048
  4. LYRICA [Suspect]
     Active Substance: PREGABALIN
     Indication: SPINAL COLUMN STENOSIS
     Route: 048
  5. LYRICA [Suspect]
     Active Substance: PREGABALIN
     Indication: SPINAL COLUMN STENOSIS
     Route: 048
     Dates: start: 201406, end: 201412
  6. VITAMINS [Concomitant]
     Active Substance: VITAMINS
     Route: 048
  7. HYDROCHLOROTHIAZIDE. [Concomitant]
     Active Substance: HYDROCHLOROTHIAZIDE
     Dosage: 25 MG TABLET, CUT IN HALF, 12.5 MG
     Route: 048
  8. CRESTOR [Suspect]
     Active Substance: ROSUVASTATIN CALCIUM
     Route: 048
  9. ALTACE [Concomitant]
     Active Substance: RAMIPRIL
     Indication: HYPERTENSION
     Dosage: 10 MG CAPSULE IN THE MORNING AND 5 MG IN THE EVENING
     Route: 048
  10. CYMBALTA [Suspect]
     Active Substance: DULOXETINE HYDROCHLORIDE
     Route: 048
     Dates: end: 201505

REACTIONS (13)
  - Hypophagia [Not Recovered/Not Resolved]
  - Dry eye [Recovered/Resolved]
  - Choking [Unknown]
  - Peripheral swelling [Recovered/Resolved]
  - Dizziness [Recovered/Resolved]
  - Secretion discharge [Recovered/Resolved]
  - Insomnia [Unknown]
  - Cough [Unknown]
  - Back pain [Not Recovered/Not Resolved]
  - Weight increased [Not Recovered/Not Resolved]
  - Dry skin [Recovered/Resolved]
  - Formication [Recovered/Resolved]
  - Body height decreased [Not Recovered/Not Resolved]

NARRATIVE: CASE EVENT DATE: 201406
